FAERS Safety Report 9338682 (Version 1)
Quarter: 2013Q2

REPORT INFORMATION
  Report Type: Spontaneous
  Country: US (occurrence: US)
  Receive Date: 20130610
  Receipt Date: 20130610
  Transmission Date: 20140414
  Serious: No
  Sender: FDA-Public Use
  Company Number: US-BAYER-2013-070564

PATIENT
  Age: 12 Year
  Sex: Female
  Weight: 76 kg

DRUGS (2)
  1. ALEVE TABLET [Suspect]
     Dosage: 1 DF, PRN
     Route: 048
     Dates: start: 20130604
  2. ZITHROMAX [Concomitant]

REACTIONS (1)
  - Drug ineffective [Not Recovered/Not Resolved]
